FAERS Safety Report 24462838 (Version 2)
Quarter: 2024Q4

REPORT INFORMATION
  Report Type: Spontaneous
  Country: CA (occurrence: CA)
  Receive Date: 20241018
  Receipt Date: 20241130
  Transmission Date: 20250115
  Serious: Yes (Life-Threatening, Other)
  Sender: SANOFI AVENTIS
  Company Number: CA-SA-2024SA299380

PATIENT
  Age: 17 Year
  Sex: Male
  Weight: 188 kg

DRUGS (9)
  1. ALEMTUZUMAB [Suspect]
     Active Substance: ALEMTUZUMAB
     Indication: Bone marrow transplant
     Dosage: 15 MG, QD
     Route: 042
     Dates: start: 20230512, end: 20230516
  2. CYCLOPHOSPHAMIDE [Suspect]
     Active Substance: CYCLOPHOSPHAMIDE
     Indication: Bone marrow transplant
     Dosage: 600 MG, QD
     Route: 042
     Dates: start: 20230511, end: 20230514
  3. FLUDARABINE [Suspect]
     Active Substance: FLUDARABINE PHOSPHATE
     Indication: Bone marrow transplant
     Dosage: 80 MG, QD
     Route: 042
     Dates: start: 20230511, end: 20230515
  4. SIROLIMUS [Suspect]
     Active Substance: SIROLIMUS
     Indication: Bone marrow transplant
     Dosage: 5 MG, QD
     Route: 048
     Dates: start: 20230523, end: 20230523
  5. SIROLIMUS [Suspect]
     Active Substance: SIROLIMUS
     Dosage: 5 MG, TID
     Route: 048
     Dates: start: 20230517, end: 20230517
  6. AMOXICILLIN [Concomitant]
     Active Substance: AMOXICILLIN
     Dosage: 500 MG, BID
     Route: 048
     Dates: start: 20230510
  7. FAMOTIDINE [Concomitant]
     Active Substance: FAMOTIDINE
     Dosage: 20 MG, BID
     Route: 042
     Dates: start: 20230510
  8. ONDANSETRON [Concomitant]
     Active Substance: ONDANSETRON
     Dosage: 8 MG
     Route: 042
     Dates: start: 20230510
  9. VALACYCLOVIR [Concomitant]
     Active Substance: VALACYCLOVIR HYDROCHLORIDE
     Dosage: 500 MG, BID
     Route: 048
     Dates: start: 20230510

REACTIONS (5)
  - Platelet count increased [Unknown]
  - Skin reaction [Unknown]
  - White blood cell count increased [Unknown]
  - Aplastic anaemia [Unknown]
  - Febrile neutropenia [Unknown]

NARRATIVE: CASE EVENT DATE: 20230523
